FAERS Safety Report 5203985-9 (Version None)
Quarter: 2007Q1

REPORT INFORMATION
  Report Type: 
  Country: None (occurrence: None)
  Receive Date: 20070105
  Receipt Date: 20061227
  Transmission Date: 20070707
  Serious: Yes (Other)
  Sender: FDA-Public Use
  Company Number: 233743

PATIENT
  Age: 83 Year
  Sex: Male
  Weight: 49 kg

DRUGS (5)
  1. RAPTIVA [Suspect]
     Indication: PSORIASIS
     Dosage: 0.5ML, 1/WEEK, SUBCUTANEOUS
     Route: 058
     Dates: start: 20060705
  2. NORVASC [Concomitant]
  3. SORIATANE [Concomitant]
  4. VITAMINS (VITAMINS  NOS) [Concomitant]
  5. CLARITIN [Concomitant]

REACTIONS (3)
  - CARCINOEMBRYONIC ANTIGEN INCREASED [None]
  - HEPATIC MASS [None]
  - METASTASES TO LIVER [None]
